FAERS Safety Report 25014353 (Version 4)
Quarter: 2025Q3

REPORT INFORMATION
  Report Type: Report from Study
  Country: US (occurrence: US)
  Receive Date: 20250226
  Receipt Date: 20250714
  Transmission Date: 20251021
  Serious: Yes (Hospitalization, Other)
  Sender: NOVARTIS
  Company Number: US-002147023-NVSC2024US227251

PATIENT
  Age: 32 Year
  Sex: Female

DRUGS (3)
  1. KESIMPTA [Suspect]
     Active Substance: OFATUMUMAB
     Indication: Product used for unknown indication
     Dosage: 20 MG, QMO
     Route: 062
     Dates: start: 20240601
  2. KESIMPTA [Suspect]
     Active Substance: OFATUMUMAB
     Dosage: 20 MG, QMO
     Route: 062
  3. KESIMPTA [Suspect]
     Active Substance: OFATUMUMAB
     Route: 065
     Dates: start: 20240625

REACTIONS (21)
  - Concussion [Unknown]
  - Loss of consciousness [Unknown]
  - Fatigue [Recovering/Resolving]
  - Rash macular [Recovering/Resolving]
  - Tremor [Recovering/Resolving]
  - Urinary tract infection [Recovering/Resolving]
  - Abdominal distension [Recovering/Resolving]
  - Diarrhoea [Recovering/Resolving]
  - Decreased appetite [Recovering/Resolving]
  - Hunger [Recovering/Resolving]
  - Nausea [Recovering/Resolving]
  - Vomiting [Recovering/Resolving]
  - Fine motor skill dysfunction [Unknown]
  - Condition aggravated [Unknown]
  - Migraine [Unknown]
  - Pain [Unknown]
  - Sleep disorder [Unknown]
  - Cerebral disorder [Unknown]
  - Food poisoning [Unknown]
  - Fall [Unknown]
  - Cognitive disorder [Unknown]

NARRATIVE: CASE EVENT DATE: 20240601
